FAERS Safety Report 15568538 (Version 2)
Quarter: 2025Q3

REPORT INFORMATION
  Report Type: Report from Study
  Country: EU (occurrence: EU)
  Receive Date: 20181031
  Receipt Date: 20250705
  Transmission Date: 20251021
  Serious: Yes (Other)
  Sender: AUROBINDO
  Company Number: EU-AUROBINDO-AUR-APL-2018-052951

PATIENT
  Age: 75 Year
  Sex: Male

DRUGS (6)
  1. PREDNISONE [Suspect]
     Active Substance: PREDNISONE
     Indication: Cryoglobulinaemia
     Route: 065
     Dates: start: 2013
  2. PREDNISONE [Suspect]
     Active Substance: PREDNISONE
     Dosage: 40 MILLIGRAM, ONCE A DAY
     Route: 065
     Dates: start: 2013
  3. BORTEZOMIB [Suspect]
     Active Substance: BORTEZOMIB
     Indication: Cryoglobulinaemia
     Dosage: 1.3 MILLIGRAM/SQ. METER, EVERY WEEK, DAYS 1, 8, 15 AND 22
     Route: 058
     Dates: start: 201411
  4. CYCLOPHOSPHAMIDE [Suspect]
     Active Substance: CYCLOPHOSPHAMIDE
     Indication: Cryoglobulinaemia
     Dosage: 750 MILLIGRAM/SQ. METER, EVERY WEEK
     Route: 042
     Dates: start: 201404, end: 201409
  5. DEXAMETHASONE [Concomitant]
     Active Substance: DEXAMETHASONE
     Indication: Cryoglobulinaemia
     Route: 065
  6. DEXAMETHASONE [Concomitant]
     Active Substance: DEXAMETHASONE
     Route: 065

REACTIONS (4)
  - Pneumonia [Unknown]
  - Toxicity to various agents [Unknown]
  - Off label use [Unknown]
  - Drug ineffective [Unknown]
